FAERS Safety Report 8135043-8 (Version None)
Quarter: 2012Q1

REPORT INFORMATION
  Report Type: 
  Country: None (occurrence: None)
  Receive Date: 20120210
  Receipt Date: 20120202
  Transmission Date: 20120608
  Serious: Yes (Other)
  Sender: FDA-Public Use
  Company Number: 2012SP006035

PATIENT
  Age: 18 Year
  Sex: Female

DRUGS (1)
  1. IMPLANON [Suspect]
     Indication: PRODUCT USED FOR UNKNOWN INDICATION
     Dosage: SBDE
     Route: 059
     Dates: start: 20091212, end: 20120117

REACTIONS (3)
  - PREGNANCY [None]
  - MATERNAL DRUGS AFFECTING FOETUS [None]
  - ABORTION SPONTANEOUS [None]
